FAERS Safety Report 26084553 (Version 1)
Quarter: 2025Q4

REPORT INFORMATION
  Report Type: Spontaneous
  Country: US (occurrence: US)
  Receive Date: 20251124
  Receipt Date: 20251124
  Transmission Date: 20260118
  Serious: Yes (Death, Hospitalization, Other)
  Sender: REGENERON
  Company Number: US-REGENERON PHARMACEUTICALS, INC.-2025-170521

PATIENT
  Sex: Male

DRUGS (3)
  1. LIBTAYO [Suspect]
     Active Substance: CEMIPLIMAB-RWLC
     Indication: Lung neoplasm malignant
     Dosage: 350 MG, EVERY 3 WEEKS
     Route: 042
     Dates: start: 20251003, end: 20251003
  2. CARBOPLATIN [Suspect]
     Active Substance: CARBOPLATIN
     Indication: Non-small cell lung cancer
     Dosage: 595 MG, EVERY 3 WEEKS
  3. TAXOL [Suspect]
     Active Substance: PACLITAXEL
     Indication: Non-small cell lung cancer
     Dosage: 392 MG, EVERY 3 WEEKS

REACTIONS (2)
  - Pneumonitis [Unknown]
  - Pneumonia [Fatal]

NARRATIVE: CASE EVENT DATE: 20251109
